FAERS Safety Report 5024637-4 (Version None)
Quarter: 2006Q2

REPORT INFORMATION
  Report Type: 
  Country: None (occurrence: None)
  Receive Date: 20060427
  Receipt Date: 20050622
  Transmission Date: 20061013
  Serious: Yes (Other)
  Sender: FDA-Public Use
  Company Number: US-JNJFOC-20050601809

PATIENT
  Age: 81 Year
  Sex: Female

DRUGS (7)
  1. RAZADYNE [Suspect]
     Indication: DEMENTIA ALZHEIMER'S TYPE
     Dosage: SEE IMAGE
     Route: 048
     Dates: start: 20050101, end: 20050201
  2. RAZADYNE [Suspect]
     Indication: DEMENTIA ALZHEIMER'S TYPE
     Dosage: SEE IMAGE
     Route: 048
     Dates: start: 20050202
  3. ASPIRIN [Concomitant]
  4. NAMENDA (MEMATINE) TABLETS [Concomitant]
  5. LIPITOR [Concomitant]
  6. CENTRUM SILVER (CENTRUM SILVER) [Concomitant]
  7. CITRACAL (CALCIUM CITRATE) [Concomitant]

REACTIONS (5)
  - AMNESIA [None]
  - FALL [None]
  - HEADACHE [None]
  - HYPERTENSION [None]
  - POLLAKIURIA [None]
